FAERS Safety Report 7386628-8 (Version None)
Quarter: 2011Q1

REPORT INFORMATION
  Report Type: 
  Country: None (occurrence: None)
  Receive Date: 20110331
  Receipt Date: 20110321
  Transmission Date: 20110831
  Serious: Yes (Other)
  Sender: FDA-Public Use
  Company Number: DE-ROCHE-767474

PATIENT
  Sex: Female

DRUGS (2)
  1. XELODA [Suspect]
     Dosage: 6 CYCLES
     Route: 065
  2. AVASTIN [Suspect]
     Dosage: 6 CYCLES
     Route: 065

REACTIONS (1)
  - VITH NERVE PARALYSIS [None]
